FAERS Safety Report 24058150 (Version 1)
Quarter: 2024Q3

REPORT INFORMATION
  Report Type: Spontaneous
  Country: KR (occurrence: KR)
  Receive Date: 20240708
  Receipt Date: 20240708
  Transmission Date: 20241017
  Serious: Yes (Other)
  Sender: GLAXOSMITHKLINE
  Company Number: KR-GLAXOSMITHKLINE-KR2024APC082317

PATIENT

DRUGS (1)
  1. FLUTICASONE FUROATE\VILANTEROL TRIFENATATE [Suspect]
     Active Substance: FLUTICASONE FUROATE\VILANTEROL TRIFENATATE
     Indication: Product used for unknown indication
     Dosage: UNK, QD 100
     Dates: start: 20240702

REACTIONS (6)
  - Paralysis [Unknown]
  - Somnolence [Unknown]
  - Abdominal discomfort [Unknown]
  - Musculoskeletal chest pain [Unknown]
  - Nervous system disorder [Unknown]
  - Inappropriate schedule of product administration [Unknown]

NARRATIVE: CASE EVENT DATE: 20240702
